FAERS Safety Report 10579064 (Version 1)
Quarter: 2014Q4

REPORT INFORMATION
  Report Type: Spontaneous
  Country: FR (occurrence: FR)
  Receive Date: 20141112
  Receipt Date: 20141112
  Transmission Date: 20150529
  Serious: Yes (Other)
  Sender: FDA-Public Use
  Company Number: FR-SA-2014SA154730

PATIENT
  Age: 80 Year
  Sex: Male

DRUGS (21)
  1. TAVANIC [Suspect]
     Active Substance: LEVOFLOXACIN
     Dosage: DOSE:2 UNIT(S)
     Route: 048
     Dates: start: 20140924, end: 20141010
  2. HEPARIN [Suspect]
     Active Substance: HEPARIN SODIUM
     Route: 042
     Dates: start: 20140911, end: 201410
  3. INEXIUM [Concomitant]
     Active Substance: ESOMEPRAZOLE
     Route: 048
     Dates: start: 20140911
  4. TAZOCILLINE [Suspect]
     Active Substance: PIPERACILLIN SODIUM\TAZOBACTAM SODIUM
     Dosage: STRENGTH: 4 G/500 MG DOSE:3 UNIT(S)
     Route: 042
     Dates: start: 20140917, end: 20140922
  5. TIAPRIDAL [Suspect]
     Active Substance: TIAPRIDE HYDROCHLORIDE
     Route: 042
     Dates: start: 20140912, end: 20140917
  6. PREVISCAN [Suspect]
     Active Substance: FLUINDIONE
     Dosage: STRENGTH: 20 MG DOSE:0.5 UNIT(S)
     Route: 048
     Dates: start: 20140925, end: 20140928
  7. TAHOR [Concomitant]
     Active Substance: ATORVASTATIN CALCIUM
     Dosage: 1TABLET DAILY THEN REDUCED DOSE NOS
     Route: 048
     Dates: start: 20140912
  8. AZANTAC [Suspect]
     Active Substance: RANITIDINE HYDROCHLORIDE
     Dosage: STRENTH: 50 MG/2ML DOSE:2 UNIT(S)
     Route: 042
     Dates: start: 20140912, end: 20141010
  9. PLAVIX [Concomitant]
     Active Substance: CLOPIDOGREL BISULFATE
     Route: 048
  10. HUMALOG [Concomitant]
     Active Substance: INSULIN LISPRO
     Route: 058
     Dates: start: 20140912
  11. AUGMENTIN [Suspect]
     Active Substance: AMOXICILLIN\CLAVULANATE POTASSIUM
     Route: 042
     Dates: start: 20140911, end: 20140917
  12. KARDEGIC [Concomitant]
     Active Substance: ASPIRIN LYSINE
     Route: 048
     Dates: start: 20140912
  13. INVANZ [Concomitant]
     Active Substance: ERTAPENEM SODIUM
     Route: 048
     Dates: start: 20140924
  14. LANTUS [Suspect]
     Active Substance: INSULIN GLARGINE
     Route: 058
     Dates: start: 20140921, end: 20141001
  15. VANCOMYCINE [Suspect]
     Active Substance: VANCOMYCIN
     Route: 042
     Dates: start: 20140917, end: 20140922
  16. AMIKACIN [Suspect]
     Active Substance: AMIKACIN
     Route: 042
     Dates: start: 20140922, end: 20140925
  17. XATRAL [Concomitant]
     Active Substance: ALFUZOSIN
     Route: 048
     Dates: start: 20140911
  18. TRIATEC [Concomitant]
     Active Substance: RAMIPRIL
     Route: 048
     Dates: start: 20140918
  19. TIENAM [Suspect]
     Active Substance: CILASTATIN SODIUM\IMIPENEM
     Route: 042
     Dates: start: 20140922, end: 20140924
  20. AMLOR [Suspect]
     Active Substance: AMLODIPINE BESYLATE
     Dosage: DOSE:1 UNIT(S)
     Route: 048
     Dates: start: 20140921, end: 20140925
  21. BACTRIM [Concomitant]
     Active Substance: SULFAMETHOXAZOLE\TRIMETHOPRIM
     Route: 048
     Dates: start: 20140924

REACTIONS (1)
  - Cutaneous vasculitis [Recovered/Resolved]

NARRATIVE: CASE EVENT DATE: 20141001
